FAERS Safety Report 14248676 (Version 1)
Quarter: 2017Q4

REPORT INFORMATION
  Report Type: Spontaneous
  Country: US (occurrence: US)
  Receive Date: 20171203
  Receipt Date: 20171203
  Transmission Date: 20180321
  Serious: Yes (Hospitalization)
  Sender: FDA-Public Use
  Company Number: None

PATIENT
  Age: 45 Year
  Sex: Female
  Weight: 124.2 kg

DRUGS (8)
  1. LISINIPRIL [Concomitant]
     Active Substance: LISINOPRIL
  2. INVOKANA [Suspect]
     Active Substance: CANAGLIFLOZIN
     Indication: GLYCOSYLATED HAEMOGLOBIN INCREASED
     Dosage: ?          QUANTITY:1 TABLET(S);?
     Route: 048
  3. HCTZ [Concomitant]
     Active Substance: HYDROCHLOROTHIAZIDE
  4. NASINEX [Concomitant]
  5. LOPID [Concomitant]
     Active Substance: GEMFIBROZIL
  6. METFORMIN [Concomitant]
     Active Substance: METFORMIN HYDROCHLORIDE
  7. INVOKANA [Suspect]
     Active Substance: CANAGLIFLOZIN
     Indication: BLOOD GLUCOSE INCREASED
     Dosage: ?          QUANTITY:1 TABLET(S);?
     Route: 048
  8. MULTIPLE VITAMIN [Concomitant]
     Active Substance: VITAMINS

REACTIONS (5)
  - Therapy cessation [None]
  - Chest pain [None]
  - Electrolyte imbalance [None]
  - Red blood cell count increased [None]
  - Gastrointestinal tract irritation [None]

NARRATIVE: CASE EVENT DATE: 20170928
